FAERS Safety Report 24959521 (Version 1)
Quarter: 2025Q1

REPORT INFORMATION
  Report Type: Spontaneous
  Country: CN (occurrence: CN)
  Receive Date: 20250212
  Receipt Date: 20250212
  Transmission Date: 20250408
  Serious: Yes (Other)
  Sender: ACCORD
  Company Number: CN-MLMSERVICE-20250124-PI374210-00165-1

PATIENT
  Age: 36 Year
  Sex: Female

DRUGS (4)
  1. GEMCITABINE [Suspect]
     Active Substance: GEMCITABINE
     Indication: Spinal cord neoplasm
     Dosage: 1 G/M2 (1.6G), ON DAYS 1 AND 8 OF CHEMOTHERAPY CYCLE
  2. DOCETAXEL [Concomitant]
     Active Substance: DOCETAXEL
     Indication: Spinal cord neoplasm
     Dosage: ON THE DAY 1 OF CHEMOTHERAPY CYCLE
  3. DOCETAXEL [Concomitant]
     Active Substance: DOCETAXEL
     Indication: Sarcomatoid carcinoma
     Dosage: ON THE DAY 1 OF CHEMOTHERAPY CYCLE
  4. GEMCITABINE [Suspect]
     Active Substance: GEMCITABINE
     Indication: Sarcomatoid carcinoma
     Dosage: 1 G/M2 (1.6G), ON DAYS 1 AND 8 OF CHEMOTHERAPY CYCLE

REACTIONS (2)
  - Leukopenia [Unknown]
  - Urinary tract infection [Unknown]
